FAERS Safety Report 5762327-0 (Version None)
Quarter: 2008Q2

REPORT INFORMATION
  Report Type: 
  Country: None (occurrence: None)
  Receive Date: 20080609
  Receipt Date: 20080530
  Transmission Date: 20081010
  Serious: Yes (Hospitalization, Other)
  Sender: FDA-Public Use
  Company Number: PHBS2007BR14645

PATIENT
  Age: 48 Year
  Sex: Female
  Weight: 56 kg

DRUGS (2)
  1. CODATEN [Suspect]
     Indication: PAIN
     Dosage: 1 DF, Q12H
     Route: 048
  2. LIDOCAINE [Concomitant]
     Indication: PAIN
     Route: 061

REACTIONS (3)
  - LEUKOCYTOSIS [None]
  - PRURITUS [None]
  - WHITE BLOOD CELL COUNT INCREASED [None]
